FAERS Safety Report 16794179 (Version 1)
Quarter: 2019Q3

REPORT INFORMATION
  Report Type: Spontaneous
  Country: FR (occurrence: FR)
  Receive Date: 20190911
  Receipt Date: 20190911
  Transmission Date: 20191005
  Serious: Yes (Hospitalization)
  Sender: FDA-Public Use
  Company Number: FR-ACCORD-154578

PATIENT
  Age: 101 Year
  Sex: Female
  Weight: 54 kg

DRUGS (9)
  1. RAMIPRIL. [Suspect]
     Active Substance: RAMIPRIL
     Indication: HYPERTENSION
     Route: 048
     Dates: end: 20190818
  2. DIOSMECTITE [Concomitant]
     Active Substance: MONTMORILLONITE
  3. COLECALCIFEROL [Concomitant]
     Active Substance: CHOLECALCIFEROL
  4. VALPROMIDE [Concomitant]
     Active Substance: VALPROMIDE
  5. ESCITALOPRAM [Suspect]
     Active Substance: ESCITALOPRAM OXALATE
     Indication: DEPRESSION
     Route: 048
  6. DEXPANTHENOL. [Concomitant]
     Active Substance: DEXPANTHENOL
  7. PARACETAMOL [Concomitant]
     Active Substance: ACETAMINOPHEN
  8. ECONAZOLE. [Concomitant]
     Active Substance: ECONAZOLE NITRATE
  9. LEVETIRACETAM. [Concomitant]
     Active Substance: LEVETIRACETAM

REACTIONS (2)
  - Orthostatic hypotension [Recovering/Resolving]
  - Fall [Unknown]

NARRATIVE: CASE EVENT DATE: 20190816
